FAERS Safety Report 5319430-9 (Version None)
Quarter: 2007Q2

REPORT INFORMATION
  Report Type: 
  Country: None (occurrence: None)
  Receive Date: 20070508
  Receipt Date: 20070426
  Transmission Date: 20071010
  Serious: Yes (Other)
  Sender: FDA-Public Use
  Company Number: GB-ELI_LILLY_AND_COMPANY-GB200704006106

PATIENT
  Age: 68 Year
  Sex: Male
  Weight: 85 kg

DRUGS (7)
  1. IRBESARTAN [Interacting]
     Dosage: 300 MG, UNK
     Route: 048
     Dates: start: 20050201
  2. ASPIRIN [Concomitant]
     Dosage: 75 MG, UNK
     Route: 048
     Dates: start: 20011203
  3. ISOSORBIDE MONONITRATE [Concomitant]
     Dosage: 50 MG, UNK
     Route: 048
     Dates: start: 20050125
  4. NICORANDIL [Concomitant]
     Dosage: 60 MG, UNK
     Route: 048
     Dates: start: 20050720
  5. PANTOPRAZOLE [Concomitant]
     Dosage: 40 MG, UNK
     Route: 048
     Dates: start: 20051219
  6. RAMIPRIL [Concomitant]
     Dosage: 10 MG, UNK
     Route: 048
     Dates: start: 20041208
  7. YENTREVE [Suspect]
     Dosage: 40 MG, 2/D
     Route: 048
     Dates: start: 20060620

REACTIONS (3)
  - DIZZINESS [None]
  - DRUG INTERACTION [None]
  - HYPOTENSION [None]
